FAERS Safety Report 4916698-5 (Version None)
Quarter: 2006Q1

REPORT INFORMATION
  Report Type: 
  Country: None (occurrence: None)
  Receive Date: 20060113
  Receipt Date: 20051012
  Transmission Date: 20060701
  Serious: No
  Sender: FDA-Public Use
  Company Number: 2005SP003482

PATIENT
  Age: 81 Year
  Sex: Female
  Weight: 65.7716 kg

DRUGS (4)
  1. LUNESTA [Suspect]
     Indication: INITIAL INSOMNIA
     Dosage: 2 MG;HS;ORAL
     Route: 048
     Dates: start: 20050101, end: 20050101
  2. PRAVACHOL [Concomitant]
  3. HYDROCHLOROTHIAZIDE [Concomitant]
  4. SALICYLIC ACID [Concomitant]

REACTIONS (1)
  - PARADOXICAL DRUG REACTION [None]
